FAERS Safety Report 14250999 (Version 1)
Quarter: 2017Q4

REPORT INFORMATION
  Report Type: Spontaneous
  Country: US (occurrence: US)
  Receive Date: 20171205
  Receipt Date: 20171205
  Transmission Date: 20180321
  Serious: Yes (Disabling)
  Sender: FDA-Public Use
  Company Number: None

PATIENT
  Age: 62 Year
  Sex: Female
  Weight: 58.95 kg

DRUGS (10)
  1. RESTASIS [Suspect]
     Active Substance: CYCLOSPORINE
     Indication: DRY EYE
     Dosage: ?          QUANTITY:1 DROP(S);?
     Route: 047
     Dates: start: 20170601, end: 20170917
  2. PERGUE2 LIFE GUARD MULTIVITAMIN WITH ALKALYZING MINERALS [Concomitant]
  3. VIT D-3 [Concomitant]
  4. SYNTHROID [Concomitant]
     Active Substance: LEVOTHYROXINE SODIUM
  5. PROMETRIUM [Concomitant]
     Active Substance: PROGESTERONE
  6. ESTRACE [Concomitant]
     Active Substance: ESTRADIOL
  7. COQ10 [Concomitant]
     Active Substance: UBIDECARENONE
  8. CARLSON ELITE OMEGA-3 FISH OIL [Concomitant]
  9. CAL MAG CITRATE [Concomitant]
  10. BIOTIN [Concomitant]
     Active Substance: BIOTIN

REACTIONS (5)
  - Immune system disorder [None]
  - Rhinovirus infection [None]
  - Oropharyngeal pain [None]
  - Nasal congestion [None]
  - Epistaxis [None]

NARRATIVE: CASE EVENT DATE: 20170621
